FAERS Safety Report 19046800 (Version 5)
Quarter: 2021Q3

REPORT INFORMATION
  Report Type: Spontaneous
  Country: ES (occurrence: ES)
  Receive Date: 20210322
  Receipt Date: 20210909
  Transmission Date: 20211014
  Serious: Yes (Death)
  Sender: FDA-Public Use
  Company Number: ES-CELLTRION INC.-2021ES002273

PATIENT

DRUGS (16)
  1. METHYLPREDNISOLONE. [Suspect]
     Active Substance: METHYLPREDNISOLONE
     Indication: IMMUNOSUPPRESSION
     Dosage: UNK
     Route: 042
  2. PREDNISONE. [Suspect]
     Active Substance: PREDNISONE
     Indication: RHEUMATOID ARTHRITIS
     Dosage: UNK
     Route: 065
  3. RITUXIMAB (UNKNOWN) [Suspect]
     Active Substance: RITUXIMAB
     Indication: INTERSTITIAL LUNG DISEASE
     Dosage: 1 G, CYCLIC (DAY 15) INFUSION, TWO IV INFUSIONS SEPARATED BY 2 WEEKS INTERVAL (ON DAY 1 AND DAY 15)
     Route: 042
  4. HYDROXYCHLOROQUINE [Suspect]
     Active Substance: HYDROXYCHLOROQUINE
     Indication: IMMUNOSUPPRESSION
     Route: 065
  5. METHOTREXATE. [Suspect]
     Active Substance: METHOTREXATE
     Indication: IMMUNOSUPPRESSION
     Route: 065
  6. RITUXIMAB (UNKNOWN) [Suspect]
     Active Substance: RITUXIMAB
     Indication: RHEUMATOID ARTHRITIS
     Dosage: TWO IV INFUSIONS SEPARATED BY 2 WEEKS INTERVAL (ON DAY 1 AND DAY 15)
     Route: 042
  7. PREDNISONE. [Concomitant]
     Active Substance: PREDNISONE
     Indication: RHEUMATOID ARTHRITIS
     Route: 065
  8. PREDNISONE. [Concomitant]
     Active Substance: PREDNISONE
     Indication: INTERSTITIAL LUNG DISEASE
  9. METHYLPREDNISOLONE. [Suspect]
     Active Substance: METHYLPREDNISOLONE
     Indication: PREMEDICATION
     Dosage: 100 MILLIGRAM,AT LEAST 30 MINUTES PRIOR TO EACH DOSE OF RITUXIMAB
     Route: 042
  10. PREDNISONE. [Suspect]
     Active Substance: PREDNISONE
     Indication: RHEUMATOID ARTHRITIS
  11. PREDNISONE. [Suspect]
     Active Substance: PREDNISONE
     Indication: INTERSTITIAL LUNG DISEASE
  12. METHYLPREDNISOLONE. [Concomitant]
     Active Substance: METHYLPREDNISOLONE
     Indication: PREMEDICATION
     Dosage: 100 MG, AT LEAST 30 MINUTES PRIOR TO EACH DOSE OF RITUXIMAB
     Route: 042
  13. SULFASALAZINE. [Suspect]
     Active Substance: SULFASALAZINE
     Indication: IMMUNOSUPPRESSION
     Route: 065
  14. CYCLOPHOSPHAMIDE. [Concomitant]
     Active Substance: CYCLOPHOSPHAMIDE
     Indication: RHEUMATOID ARTHRITIS
     Dosage: UNK (QUARTERLY UPTO 12 MONTHS)
     Route: 065
  15. RITUXIMAB (UNKNOWN) [Suspect]
     Active Substance: RITUXIMAB
     Indication: RHEUMATOID ARTHRITIS
     Dosage: 1 G, CYCLIC (DAY 15) INFUSION, TWO IV INFUSIONS SEPARATED BY 2 WEEKS INTERVAL (ON DAY 1 AND DAY 15)
     Route: 042
  16. CYCLOPHOSPHAMIDE. [Concomitant]
     Active Substance: CYCLOPHOSPHAMIDE
     Indication: INTERSTITIAL LUNG DISEASE
     Dosage: 750 MG/M2, QMO (FOR FIRST 6 MONTHS)
     Route: 065

REACTIONS (6)
  - Septic shock [Fatal]
  - Pneumonia [Fatal]
  - Interstitial lung disease [Fatal]
  - Rheumatoid arthritis [Fatal]
  - Disease progression [Fatal]
  - Off label use [Unknown]
